FAERS Safety Report 7973838-1 (Version None)
Quarter: 2011Q4

REPORT INFORMATION
  Report Type: 
  Country: None (occurrence: None)
  Receive Date: 20111213
  Receipt Date: 20111206
  Transmission Date: 20120403
  Serious: Yes (Hospitalization, Other)
  Sender: FDA-Public Use
  Company Number: NZ-B.I. PHARMACEUTICALS,INC./RIDGEFIELD-2011-AU-01372AU

PATIENT
  Sex: Female
  Weight: 76 kg

DRUGS (12)
  1. PRADAXA [Suspect]
     Indication: ATRIAL FIBRILLATION
     Dosage: 220 MG
     Route: 048
     Dates: start: 20110730, end: 20110810
  2. SLOW-K [Concomitant]
     Dosage: 1200 MG
  3. ZOCOR [Concomitant]
     Dosage: 20 MG
  4. CARVEDILOL [Concomitant]
     Dosage: 25 MG
  5. ACETAMINOPHEN AND CODEINE PHOSPHATE [Concomitant]
     Dosage: 2 TABS, THREE TIMES DAILY PRN
  6. DIGOXIN [Concomitant]
     Dosage: 62.5 MCG
  7. CALCIFEROL STRONG [Concomitant]
     Dosage: 0.0417 MG
  8. CILAZAPRIL MONOHYDRATE [Concomitant]
     Dosage: 1 MG
  9. LEVOTHYROXINE SODIUM [Concomitant]
     Dosage: 100 MCG
  10. PRILOSEC [Concomitant]
     Dosage: 40 MG
  11. FUROSEMIDE [Concomitant]
     Dosage: 250 MG
  12. ISOSORBIDE MONONITRATE [Concomitant]
     Dosage: 60 MG

REACTIONS (3)
  - GASTROINTESTINAL CARCINOMA [None]
  - MELAENA [None]
  - RECTAL HAEMORRHAGE [None]
